FAERS Safety Report 9912102 (Version 1)
Quarter: 2014Q1

REPORT INFORMATION
  Report Type: Spontaneous
  Country: IN (occurrence: IN)
  Receive Date: 20140219
  Receipt Date: 20140219
  Transmission Date: 20141002
  Serious: Yes (Hospitalization)
  Sender: FDA-Public Use
  Company Number: IN-MACLEODS PHARMACEUTICALS US LTD-MAC2014000890

PATIENT
  Sex: 0

DRUGS (1)
  1. AMLOVAS 5 MG [Suspect]
     Indication: PRODUCT USED FOR UNKNOWN INDICATION
     Dosage: 5 MGX50 TABLETS
     Route: 048

REACTIONS (12)
  - Pleural effusion [Recovered/Resolved]
  - Pulmonary mass [Recovered/Resolved]
  - Anomalous pulmonary venous connection [Recovered/Resolved]
  - Hypoxia [Recovered/Resolved]
  - Shock [Recovered/Resolved]
  - Urine output decreased [Recovered/Resolved]
  - Overdose [Recovered/Resolved]
  - Hypotension [Recovered/Resolved]
  - Abdominal pain [Recovered/Resolved]
  - Dizziness [Recovered/Resolved]
  - Dyspnoea [Recovered/Resolved]
  - Vomiting [Recovered/Resolved]
